FAERS Safety Report 19804768 (Version 1)
Quarter: 2021Q3

REPORT INFORMATION
  Report Type: Report from Study
  Country: None (occurrence: BR)
  Receive Date: 20210908
  Receipt Date: 20210908
  Transmission Date: 20211014
  Serious: Yes (Hospitalization, Other)
  Sender: FDA-Public Use
  Company Number: BR-ABBVIE-21K-020-4068077-00

PATIENT
  Sex: Female
  Weight: 47 kg

DRUGS (4)
  1. FLU VACCINE VII [Concomitant]
     Active Substance: INFLUENZA VIRUS VACCINE
     Indication: PRODUCT USED FOR UNKNOWN INDICATION
     Dates: start: 2021, end: 2021
  2. COVID?19 VACCINE [Concomitant]
     Indication: COVID-19 IMMUNISATION
     Dates: start: 2021, end: 2021
  3. HUMIRA [Suspect]
     Active Substance: ADALIMUMAB
     Indication: UVEITIS
     Dosage: UNSPECIFIED DOSE
     Route: 058
     Dates: end: 2021
  4. HUMIRA [Suspect]
     Active Substance: ADALIMUMAB
     Dosage: UNSPECIFIED DOSE
     Route: 058
     Dates: start: 2021

REACTIONS (4)
  - Implantable defibrillator insertion [Unknown]
  - Pruritus [Unknown]
  - Cataract [Unknown]
  - Procedural complication [Unknown]

NARRATIVE: CASE EVENT DATE: 2021
